FAERS Safety Report 9409029 (Version 1)
Quarter: 2013Q3

REPORT INFORMATION
  Report Type: Report from Study
  Country: US (occurrence: US)
  Receive Date: 20130719
  Receipt Date: 20130719
  Transmission Date: 20140515
  Serious: Yes (Other)
  Sender: FDA-Public Use
  Company Number: US-ROCHE-1249798

PATIENT
  Sex: 0

DRUGS (4)
  1. RITUXIMAB [Suspect]
     Indication: B-CELL LYMPHOMA
     Dosage: DAYS 1, 8, AND 15
     Route: 065
  2. YTTRIUM Y-90 IBRITUMOMAB TIUTUXAN [Suspect]
     Indication: B-CELL LYMPHOMA
     Dosage: 0.4 MCI/KG (MAXIMUM 32 MCI) ON DAY 15
     Route: 065
  3. INDIUM-111 IBRITUMOMAB TIUXETAN [Suspect]
     Indication: B-CELL LYMPHOMA
     Dosage: ON DAY 1
     Route: 065
  4. INDIUM-111 IBRITUMOMAB TIUXETAN [Suspect]
     Dosage: ON DAY 8
     Route: 065

REACTIONS (2)
  - Bone marrow failure [Unknown]
  - Febrile neutropenia [Unknown]
